FAERS Safety Report 23430270 (Version 1)
Quarter: 2024Q1

REPORT INFORMATION
  Report Type: Spontaneous
  Country: US (occurrence: US)
  Receive Date: 20240123
  Receipt Date: 20240123
  Transmission Date: 20240410
  Serious: No
  Sender: FDA-Public Use
  Company Number: US-ABBVIE-5599413

PATIENT
  Sex: Female

DRUGS (2)
  1. BOTOX [Suspect]
     Active Substance: ONABOTULINUMTOXINA
     Indication: Lip disorder
     Dosage: TIME INTERVAL: AS NECESSARY
     Route: 065
  2. JUVEDERM [Suspect]
     Active Substance: HYALURONIC ACID
     Indication: Product used for unknown indication
     Route: 065

REACTIONS (4)
  - Lip disorder [Unknown]
  - Adverse drug reaction [Unknown]
  - Suspected counterfeit product [Unknown]
  - Off label use [Unknown]
